FAERS Safety Report 6045921-1 (Version None)
Quarter: 2009Q1

REPORT INFORMATION
  Report Type: 
  Country: None (occurrence: None)
  Receive Date: 20090121
  Receipt Date: 20090108
  Transmission Date: 20090719
  Serious: Yes (Death, Disabling)
  Sender: FDA-Public Use
  Company Number: DE-GENENTECH-273784

PATIENT
  Sex: Female

DRUGS (2)
  1. BEVACIZUMAB [Suspect]
     Indication: BREAST CANCER
     Dosage: 720 MG, Q2W
     Route: 042
     Dates: start: 20080516
  2. PACLITAXEL [Suspect]
     Indication: BREAST CANCER
     Dosage: 137 MG, Q4W
     Route: 042
     Dates: start: 20080516

REACTIONS (1)
  - HEPATITIS [None]
